FAERS Safety Report 4954627-9 (Version None)
Quarter: 2006Q1

REPORT INFORMATION
  Report Type: 
  Country: None (occurrence: None)
  Receive Date: 20060327
  Receipt Date: 20040419
  Transmission Date: 20060701
  Serious: Yes (Hospitalization)
  Sender: FDA-Public Use
  Company Number: HU-ROCHE-364737

PATIENT
  Age: 75 Year
  Sex: Female
  Weight: 42.5 kg

DRUGS (8)
  1. BONIVA [Suspect]
     Indication: OSTEOPOROSIS POSTMENOPAUSAL
     Dosage: TAKEN ON A SINGLE DAY
     Route: 048
     Dates: start: 20020808, end: 20030923
  2. PLACEBO [Suspect]
     Indication: OSTEOPOROSIS POSTMENOPAUSAL
     Route: 048
     Dates: start: 20020808, end: 20031002
  3. MERCKFORMIN [Concomitant]
  4. EDNYT [Concomitant]
  5. DIGOXIN [Concomitant]
  6. AMILORID [Concomitant]
  7. CAVINTON [Concomitant]
  8. HYDROCHLOROTHIAZIDE [Concomitant]

REACTIONS (1)
  - GASTRIC ULCER HAEMORRHAGE [None]
